FAERS Safety Report 7629225-9 (Version None)
Quarter: 2011Q3

REPORT INFORMATION
  Report Type: 
  Country: None (occurrence: None)
  Receive Date: 20110701
  Receipt Date: 20101026
  Transmission Date: 20111222
  Serious: Yes (Other)
  Sender: FDA-Public Use
  Company Number: 7024656

PATIENT
  Age: 32 Year
  Sex: Female
  Weight: 113 kg

DRUGS (2)
  1. ZANTAC [Concomitant]
  2. REBIF [Suspect]
     Indication: MULTIPLE SCLEROSIS
     Dates: start: 20040101, end: 20070101

REACTIONS (4)
  - CONDITION AGGRAVATED [None]
  - SUICIDAL IDEATION [None]
  - MULTIPLE SCLEROSIS [None]
  - DEPRESSED MOOD [None]
